FAERS Safety Report 4286445-1 (Version None)
Quarter: 2004Q1

REPORT INFORMATION
  Report Type: 
  Country: None (occurrence: None)
  Receive Date: 20040204
  Receipt Date: 20040119
  Transmission Date: 20041129
  Serious: Yes (Death)
  Sender: FDA-Public Use
  Company Number: DSA_23881_2004

PATIENT
  Age: 73 Year
  Sex: Female

DRUGS (2)
  1. TEMESTA [Suspect]
     Dates: start: 20030112, end: 20030112
  2. ALCOHOL [Suspect]
     Dates: start: 20030112, end: 20030112

REACTIONS (4)
  - ALCOHOL USE [None]
  - CARBOXYHAEMOGLOBIN INCREASED [None]
  - OVERDOSE [None]
  - THERMAL BURN [None]
